FAERS Safety Report 4824548-0 (Version None)
Quarter: 2005Q4

REPORT INFORMATION
  Report Type: 
  Country: None (occurrence: None)
  Receive Date: 20051108
  Receipt Date: 20051108
  Transmission Date: 20060501
  Serious: Yes (Other)
  Sender: FDA-Public Use
  Company Number: None

PATIENT
  Age: 40 Year
  Sex: Female
  Weight: 111.1313 kg

DRUGS (2)
  1. DURAGESIC-25 [Suspect]
     Indication: LUMBAR RADICULOPATHY
     Dosage: 25 MG CHANGE Q 72H
  2. DURAGESIC-25 [Suspect]
     Indication: OSTEOARTHRITIS
     Dosage: 25 MG CHANGE Q 72H

REACTIONS (3)
  - GENERALISED OEDEMA [None]
  - THERAPEUTIC RESPONSE UNEXPECTED WITH DRUG SUBSTITUTION [None]
  - URTICARIA GENERALISED [None]
